FAERS Safety Report 14684317 (Version 2)
Quarter: 2018Q2

REPORT INFORMATION
  Report Type: Spontaneous
  Country: US (occurrence: US)
  Receive Date: 20180327
  Receipt Date: 20180405
  Transmission Date: 20180711
  Serious: Yes (Other)
  Sender: FDA-Public Use
  Company Number: US-BAYER-2018-052862

PATIENT
  Age: 69 Year
  Sex: Male

DRUGS (1)
  1. CIPRO [Suspect]
     Active Substance: CIPROFLOXACIN HYDROCHLORIDE
     Dosage: 500 MG, BID
     Route: 048
     Dates: start: 20180306, end: 20180308

REACTIONS (9)
  - Blood pressure systolic increased [None]
  - Dyspnoea [None]
  - Pain in extremity [None]
  - Heart rate increased [None]
  - Fatigue [None]
  - Tendon pain [None]
  - Hypertension [None]
  - Gait disturbance [None]
  - Headache [None]

NARRATIVE: CASE EVENT DATE: 201803
